FAERS Safety Report 8298887-8 (Version None)
Quarter: 2012Q2

REPORT INFORMATION
  Report Type: 
  Country: None (occurrence: None)
  Receive Date: 20120419
  Receipt Date: 20120417
  Transmission Date: 20120825
  Serious: Yes (Other)
  Sender: FDA-Public Use
  Company Number: US-PFIZER INC-2012095664

PATIENT
  Sex: Female
  Weight: 52.154 kg

DRUGS (4)
  1. ZANTAC [Concomitant]
     Indication: DYSPEPSIA
     Dosage: 300 MG, DAILY
  2. LYRICA [Suspect]
     Indication: HEADACHE
     Dosage: 25MG ONCE AT NIGHT
     Route: 048
     Dates: start: 20120329, end: 20120329
  3. TRAZODONE [Concomitant]
     Indication: SLEEP DISORDER
     Dosage: 100 MG, DAILY
  4. SINGULAIR [Concomitant]
     Indication: ASTHMA
     Dosage: 10 MG, DAILY

REACTIONS (4)
  - MUSCLE TWITCHING [None]
  - EMOTIONAL DISORDER [None]
  - CRYING [None]
  - SWOLLEN TONGUE [None]
